FAERS Safety Report 10376350 (Version 3)
Quarter: 2014Q4

REPORT INFORMATION
  Report Type: Spontaneous
  Country: IT (occurrence: IT)
  Receive Date: 20140811
  Receipt Date: 20141202
  Transmission Date: 20150528
  Serious: Yes (Death, Other)
  Sender: FDA-Public Use
  Company Number: IT-SA-2014SA106128

PATIENT
  Age: 58 Year
  Sex: Female

DRUGS (1)
  1. TAXOTERE [Suspect]
     Active Substance: DOCETAXEL
     Indication: LUNG NEOPLASM MALIGNANT
     Route: 065
     Dates: start: 20140102, end: 20140708

REACTIONS (8)
  - Vertigo [Fatal]
  - Diarrhoea [Fatal]
  - Vomiting [Fatal]
  - Neutropenia [Fatal]
  - Dizziness [Unknown]
  - Septic shock [Fatal]
  - Leukopenia [Unknown]
  - Hyponatraemia [Fatal]

NARRATIVE: CASE EVENT DATE: 20140717
